FAERS Safety Report 7503192-0 (Version None)
Quarter: 2011Q2

REPORT INFORMATION
  Report Type: 
  Country: None (occurrence: None)
  Receive Date: 20110525
  Receipt Date: 20101207
  Transmission Date: 20111010
  Serious: No
  Sender: FDA-Public Use
  Company Number: US-NOVEN-ALL1-2010-05708

PATIENT
  Sex: Male
  Weight: 31.746 kg

DRUGS (2)
  1. DAYTRANA [Suspect]
     Dosage: 10 MG, OTHER (SCHOOL DAYS)
     Route: 062
     Dates: start: 20070101
  2. KEPPRA [Concomitant]
     Dosage: 12 MG, 1X/DAY:QD
     Route: 048

REACTIONS (6)
  - PRODUCT QUALITY ISSUE [None]
  - APPLICATION SITE DISCOLOURATION [None]
  - APPLICATION SITE SCAB [None]
  - DRUG ADMINISTERED AT INAPPROPRIATE SITE [None]
  - APPLICATION SITE PRURITUS [None]
  - APPLICATION SITE PAPULES [None]
